FAERS Safety Report 22672534 (Version 20)
Quarter: 2024Q4

REPORT INFORMATION
  Report Type: Spontaneous
  Country: US (occurrence: US)
  Receive Date: 20230705
  Receipt Date: 20241219
  Transmission Date: 20250115
  Serious: Yes (Hospitalization, Other)
  Sender: VERTEX
  Company Number: US-VERTEX PHARMACEUTICALS-2023-009296

PATIENT

DRUGS (18)
  1. TRIKAFTA [Suspect]
     Active Substance: ELEXACAFTOR\IVACAFTOR\TEZACAFTOR
     Indication: Cystic fibrosis
     Dosage: UNK FREQ
     Route: 048
  2. TRIKAFTA [Suspect]
     Active Substance: ELEXACAFTOR\IVACAFTOR\TEZACAFTOR
     Dosage: SWITCH MORNING AND EVENING DOSE
     Route: 048
  3. TRIKAFTA [Suspect]
     Active Substance: ELEXACAFTOR\IVACAFTOR\TEZACAFTOR
     Dosage: CUT EVENING TABLET BY HALF
     Route: 048
  4. TRIKAFTA [Suspect]
     Active Substance: ELEXACAFTOR\IVACAFTOR\TEZACAFTOR
     Dosage: REDUCED DOSE
     Route: 048
  5. PREDNISONE [Suspect]
     Active Substance: PREDNISONE
     Indication: Product used for unknown indication
     Route: 065
  6. TOBI PODHALER [Suspect]
     Active Substance: TOBRAMYCIN
     Indication: Product used for unknown indication
  7. CREON [Suspect]
     Active Substance: PANCRELIPASE AMYLASE\PANCRELIPASE LIPASE\PANCRELIPASE PROTEASE
     Indication: Product used for unknown indication
     Dosage: 20K CREON
     Route: 048
  8. CREON [Suspect]
     Active Substance: PANCRELIPASE AMYLASE\PANCRELIPASE LIPASE\PANCRELIPASE PROTEASE
     Dosage: 3 (35K), 105K PER MEAL,
     Route: 048
  9. CREON [Suspect]
     Active Substance: PANCRELIPASE AMYLASE\PANCRELIPASE LIPASE\PANCRELIPASE PROTEASE
     Dosage: 12X25K, 100K
     Route: 048
  10. AZITHROMYCIN [Concomitant]
     Active Substance: AZITHROMYCIN
  11. SODIUM CHLORIDE [Concomitant]
     Active Substance: SODIUM CHLORIDE
  12. CIPRO [Concomitant]
     Active Substance: CIPROFLOXACIN HYDROCHLORIDE
  13. MIRTAZAPINE [Concomitant]
     Active Substance: MIRTAZAPINE
     Dosage: REDUCED DOSE
  14. PANTOPRAZOLE [Concomitant]
     Active Substance: PANTOPRAZOLE
  15. OMEPRAZOLE [Concomitant]
     Active Substance: OMEPRAZOLE
  16. MEROPENEM [Concomitant]
     Active Substance: MEROPENEM
     Route: 042
  17. TOBRAMYCIN [Concomitant]
     Active Substance: TOBRAMYCIN\TOBRAMYCIN SULFATE
     Route: 042
  18. CEFTAZIDIME [Concomitant]
     Active Substance: CEFTAZIDIME
     Route: 042

REACTIONS (74)
  - Brain fog [Not Recovered/Not Resolved]
  - Anxiety [Recovering/Resolving]
  - Gastrointestinal disorder [Recovering/Resolving]
  - Steatorrhoea [Not Recovered/Not Resolved]
  - Abdominal distension [Recovering/Resolving]
  - Diarrhoea [Recovering/Resolving]
  - Abdominal tenderness [Unknown]
  - Abdominal pain [Recovered/Resolved]
  - Cholelithiasis [Unknown]
  - Hospitalisation [Unknown]
  - Infective pulmonary exacerbation of cystic fibrosis [Unknown]
  - Inflammation [Unknown]
  - Immunodeficiency [Unknown]
  - Chest discomfort [Unknown]
  - Hyponatraemia [Unknown]
  - Muscle spasms [Not Recovered/Not Resolved]
  - Dehydration [Not Recovered/Not Resolved]
  - Productive cough [Unknown]
  - Retching [Unknown]
  - Weight gain poor [Unknown]
  - Sleep deficit [Unknown]
  - Memory impairment [Unknown]
  - Pulmonary function test decreased [Unknown]
  - Disaccharide metabolism disorder [Not Recovered/Not Resolved]
  - Panic attack [Unknown]
  - Faecal elastase concentration abnormal [Recovering/Resolving]
  - Lethargy [Recovering/Resolving]
  - Paranoia [Recovering/Resolving]
  - Alopecia [Recovering/Resolving]
  - Asthma [Unknown]
  - Dyspnoea [Unknown]
  - Derealisation [Recovering/Resolving]
  - Exercise tolerance decreased [Recovering/Resolving]
  - Thinking abnormal [Recovering/Resolving]
  - Aphasia [Recovering/Resolving]
  - Mental impairment [Recovering/Resolving]
  - Emotional disorder [Recovering/Resolving]
  - Stress [Unknown]
  - Gastric hypermotility [Unknown]
  - Terminal insomnia [Not Recovered/Not Resolved]
  - Insomnia [Not Recovered/Not Resolved]
  - Pancreatic failure [Unknown]
  - Hyperchlorhydria [Unknown]
  - Clumsiness [Not Recovered/Not Resolved]
  - Nightmare [Unknown]
  - Palpitations [Unknown]
  - Weight decreased [Not Recovered/Not Resolved]
  - Haemoptysis [Not Recovered/Not Resolved]
  - Product dose omission issue [Recovered/Resolved]
  - General physical health deterioration [Not Recovered/Not Resolved]
  - Quality of life decreased [Not Recovered/Not Resolved]
  - Nausea [Unknown]
  - Underweight [Not Recovered/Not Resolved]
  - Gastrointestinal sounds abnormal [Unknown]
  - Defaecation urgency [Unknown]
  - Sputum increased [Unknown]
  - Gastrointestinal pain [Unknown]
  - Digestive enzyme abnormal [Not Recovered/Not Resolved]
  - Viral infection [Unknown]
  - Feeling abnormal [Unknown]
  - Sputum discoloured [Unknown]
  - Decreased appetite [Unknown]
  - Food intolerance [Unknown]
  - Helicobacter infection [Unknown]
  - Amoebiasis [Unknown]
  - Gastrointestinal microorganism overgrowth [Unknown]
  - Irritable bowel syndrome [Unknown]
  - Sputum retention [Unknown]
  - Hunger [Unknown]
  - Early satiety [Unknown]
  - Hypophagia [Unknown]
  - Depressed mood [Unknown]
  - Flatulence [Unknown]
  - Abdominal discomfort [Unknown]
